FAERS Safety Report 23713116 (Version 1)
Quarter: 2024Q2

REPORT INFORMATION
  Report Type: Spontaneous
  Country: US (occurrence: None)
  Receive Date: 20240405
  Receipt Date: 20240405
  Transmission Date: 20240716
  Serious: Yes (Life-Threatening, Hospitalization)
  Sender: FDA-Public Use
  Company Number: None

PATIENT
  Age: 23 Year
  Sex: Male
  Weight: 58 kg

DRUGS (1)
  1. CABOTEGRAVIR [Suspect]
     Active Substance: CABOTEGRAVIR
     Indication: Prophylaxis against HIV infection
     Dosage: FREQUENCY : DAILY;?
     Route: 048
     Dates: start: 20240122, end: 20240213

REACTIONS (5)
  - Dysphagia [None]
  - Oral mucosal exfoliation [None]
  - SJS-TEN overlap [None]
  - Skin graft [None]
  - Staphylococcal infection [None]

NARRATIVE: CASE EVENT DATE: 20240213
